FAERS Safety Report 23117947 (Version 2)
Quarter: 2024Q1

REPORT INFORMATION
  Report Type: Spontaneous
  Country: US (occurrence: US)
  Receive Date: 20231027
  Receipt Date: 20240105
  Transmission Date: 20240410
  Serious: No
  Sender: FDA-Public Use
  Company Number: US-PFIZER INC-PV202300175552

PATIENT
  Age: 77 Year
  Sex: Female
  Weight: 58.503 kg

DRUGS (7)
  1. XELJANZ XR [Suspect]
     Active Substance: TOFACITINIB CITRATE
     Indication: Rheumatoid arthritis
     Dosage: 11 MG, 1X/DAY
     Dates: start: 20231110
  2. METHOTREXATE [Concomitant]
     Active Substance: METHOTREXATE
     Dosage: UNK
  3. PREDNISONE [Concomitant]
     Active Substance: PREDNISONE
     Dosage: 5 MG, DAILY
  4. FOLIC ACID [Concomitant]
     Active Substance: FOLIC ACID
     Dosage: UNK
  5. SPIRONOLACTONE [Concomitant]
     Active Substance: SPIRONOLACTONE
     Indication: Blood pressure abnormal
     Dosage: UNK
  6. GEMTESA [Concomitant]
     Active Substance: VIBEGRON
     Dosage: UNK
  7. PROLIA [Concomitant]
     Active Substance: DENOSUMAB
     Dosage: UNK

REACTIONS (4)
  - Pain [Unknown]
  - Initial insomnia [Recovered/Resolved]
  - Insomnia [Recovered/Resolved]
  - Rhinorrhoea [Unknown]

NARRATIVE: CASE EVENT DATE: 20231201
